FAERS Safety Report 5272677-2 (Version None)
Quarter: 2007Q1

REPORT INFORMATION
  Report Type: 
  Country: None (occurrence: None)
  Receive Date: 20070322
  Receipt Date: 20070315
  Transmission Date: 20070707
  Serious: Yes (Other)
  Sender: FDA-Public Use
  Company Number: GBWYE231218JUL06

PATIENT
  Age: 35 Year
  Sex: Female
  Weight: 98 kg

DRUGS (5)
  1. VENLAFAXINE HYDROCHLORIDE [Suspect]
     Indication: DEPRESSION
     Dosage: 150MG, FREQUENCY UNSPECIFIED
     Route: 048
     Dates: start: 20030605, end: 20060401
  2. VENLAFAXINE HYDROCHLORIDE [Suspect]
     Dosage: 37.5MG, FREQUENCY UNSPECIFIED
     Route: 048
     Dates: start: 20060401, end: 20060517
  3. MOMETASONE FUROATE [Concomitant]
     Dosage: UNKNOWN
     Route: 045
  4. SALBUTAMOL [Concomitant]
     Dosage: UNKNOWN
     Route: 055
  5. BECLOMETHASONE DIPROPIONATE [Concomitant]
     Dosage: UNKNOWN
     Route: 055

REACTIONS (5)
  - DRUG WITHDRAWAL SYNDROME [None]
  - HYPERVIGILANCE [None]
  - NAUSEA [None]
  - PARAESTHESIA [None]
  - PSYCHOMOTOR HYPERACTIVITY [None]
